FAERS Safety Report 5780586-5 (Version None)
Quarter: 2008Q2

REPORT INFORMATION
  Report Type: 
  Country: None (occurrence: None)
  Receive Date: 20080620
  Receipt Date: 20080611
  Transmission Date: 20081010
  Serious: Yes (Hospitalization)
  Sender: FDA-Public Use
  Company Number: US-ELI_LILLY_AND_COMPANY-US200806002460

PATIENT
  Sex: Male
  Weight: 102.4 kg

DRUGS (10)
  1. BYETTA [Suspect]
     Indication: TYPE 2 DIABETES MELLITUS
     Dosage: 5 UG, 2/D
     Route: 058
     Dates: start: 20070101, end: 20070101
  2. BYETTA [Suspect]
     Dosage: 10 UG, 2/D
     Route: 058
     Dates: start: 20070101, end: 20070101
  3. BYETTA [Suspect]
     Dosage: 5 UG, 2/D
     Route: 058
     Dates: start: 20070101
  4. ACTOS [Concomitant]
     Indication: DIABETES MELLITUS
     Dosage: 30 MG, DAILY (1/D)
     Dates: start: 20010101, end: 20070101
  5. ACTOS [Concomitant]
     Dosage: 15 MG, DAILY (1/D)
     Dates: start: 20070101
  6. METOPROLOL [Concomitant]
     Indication: HEART RATE IRREGULAR
     Dosage: 25 MG, DAILY (1/D)
     Dates: start: 20060101
  7. BUPROPION HCL [Concomitant]
     Dosage: 150 MG, 2/D
     Dates: start: 20080401
  8. CRESTOR [Concomitant]
     Indication: BLOOD CHOLESTEROL
     Dosage: 10 MG, DAILY (1/D)
     Dates: start: 20010101
  9. TRAZODONE HCL [Concomitant]
     Indication: DEPRESSION
     Dosage: 100 MG, DAILY (1/D)
     Dates: start: 20050101
  10. SYNTHROID [Concomitant]
     Indication: AUTOIMMUNE THYROIDITIS
     Dosage: 25 UG, DAILY (1/D)
     Dates: start: 20010101

REACTIONS (4)
  - ABDOMINAL DISTENSION [None]
  - FALL [None]
  - HEART RATE IRREGULAR [None]
  - LOSS OF CONSCIOUSNESS [None]
